FAERS Safety Report 13675220 (Version 2)
Quarter: 2017Q2

REPORT INFORMATION
  Report Type: Spontaneous
  Country: RO (occurrence: RO)
  Receive Date: 20170621
  Receipt Date: 20170621
  Transmission Date: 20170830
  Serious: Yes (Other)
  Sender: FDA-Public Use
  Company Number: RO-BAYER-2017-116824

PATIENT

DRUGS (1)
  1. ULTRAVIST [Suspect]
     Active Substance: IOPROMIDE
     Dosage: 1 DF, ONCE
     Route: 042
     Dates: start: 201706, end: 201706

REACTIONS (4)
  - Tremor [None]
  - Pruritus [None]
  - Nausea [None]
  - Upper airway obstruction [None]

NARRATIVE: CASE EVENT DATE: 201706
